FAERS Safety Report 13801967 (Version 1)
Quarter: 2017Q3

REPORT INFORMATION
  Report Type: Spontaneous
  Country: GB (occurrence: GB)
  Receive Date: 20170727
  Receipt Date: 20170727
  Transmission Date: 20171127
  Serious: Yes (Hospitalization, Other)
  Sender: FDA-Public Use
  Company Number: GB-SA-2017SA135414

PATIENT
  Age: 74 Year
  Sex: Female
  Weight: 54.6 kg

DRUGS (14)
  1. DOXAZOSIN [Concomitant]
     Active Substance: DOXAZOSIN\DOXAZOSIN MESYLATE
     Dosage: MORNING
     Route: 065
     Dates: start: 20170607
  2. PARACETAMOL [Concomitant]
     Active Substance: ACETAMINOPHEN
     Dosage: DOSE AND FREQUENCY: 1 TO 2 TABLETS UP TO FOUR TIMES DAILY AS REQUIRED
     Route: 065
     Dates: start: 20170713
  3. RANITIDINE. [Concomitant]
     Active Substance: RANITIDINE
     Route: 065
     Dates: start: 20170713
  4. PREDNISOLONE. [Concomitant]
     Active Substance: PREDNISOLONE
     Dosage: DURATION OF DRUG ADMINISTRATION: 5 DAYS
     Route: 065
     Dates: start: 20170511
  5. RAMIPRIL. [Concomitant]
     Active Substance: RAMIPRIL
     Dosage: 5MG AND 10 MG CAPSULES
     Route: 065
     Dates: start: 20170511
  6. TIOTROPIUM BROMIDE [Concomitant]
     Active Substance: TIOTROPIUM BROMIDE
     Dosage: MORNING; ROUTE: RESPIRATORY
     Route: 055
     Dates: start: 20170511
  7. SERTRALINE [Concomitant]
     Active Substance: SERTRALINE HYDROCHLORIDE
     Route: 065
     Dates: start: 20170512, end: 20170713
  8. SLOZEM [Concomitant]
     Active Substance: DILTIAZEM
     Dosage: 240 MG AND 120MG
     Route: 065
     Dates: start: 20170511
  9. INDAPAMIDE. [Suspect]
     Active Substance: INDAPAMIDE
     Dosage: DOSE: 1.5 MG AND 2.5 MG
     Route: 048
     Dates: start: 20170301, end: 20170625
  10. DOXYCYCLINE. [Concomitant]
     Active Substance: DOXYCYCLINE
     Dosage: TWO NOW THEN ONE DAILY
     Route: 065
     Dates: start: 20170511
  11. VENTOLIN [Concomitant]
     Active Substance: ALBUTEROL SULFATE
     Dosage: DOSE: 1-2 PUFF WHEN REQUIRED 4-6 HOURLY
     Route: 065
     Dates: start: 20170511
  12. FOSTAIR [Concomitant]
     Active Substance: BECLOMETHASONE\FORMOTEROL
     Route: 055
     Dates: start: 20170511
  13. OMEPRAZOLE. [Concomitant]
     Active Substance: OMEPRAZOLE
     Route: 065
     Dates: start: 20170511
  14. TIOTROPIUM [Concomitant]
     Active Substance: TIOTROPIUM
     Dosage: FORM: INHALATION POWDER; ROUTE: RESPIRATORY
     Route: 055
     Dates: start: 20170511

REACTIONS (4)
  - Hyponatraemia [Unknown]
  - Syncope [Unknown]
  - Inappropriate antidiuretic hormone secretion [Recovering/Resolving]
  - Unresponsive to stimuli [Unknown]

NARRATIVE: CASE EVENT DATE: 20170625
